FAERS Safety Report 24869564 (Version 1)
Quarter: 2025Q1

REPORT INFORMATION
  Report Type: Spontaneous
  Country: FR (occurrence: FR)
  Receive Date: 20250121
  Receipt Date: 20250121
  Transmission Date: 20250409
  Serious: Yes (Hospitalization)
  Sender: FRESENIUS KABI
  Company Number: None

PATIENT
  Age: 72 Year
  Sex: Female

DRUGS (7)
  1. OXALIPLATIN [Suspect]
     Active Substance: OXALIPLATIN
     Indication: Oesophageal neoplasm
     Route: 042
     Dates: start: 20241206, end: 20241206
  2. OPDIVO [Concomitant]
     Active Substance: NIVOLUMAB
     Indication: Oesophageal neoplasm
     Route: 042
     Dates: start: 20241206, end: 20241206
  3. XANAX 0.25 mg, scored tablet [ALPRAZOLAM] [Concomitant]
     Indication: Anxiety
     Route: 048
     Dates: start: 20241205, end: 20241208
  4. SOLUMEDROL [METHYLPREDNISOLONE (HEMISUCCINATE)] [Concomitant]
     Indication: Nausea
     Route: 042
     Dates: start: 20241206, end: 20241214
  5. PLITICAN, injectable solution [ALIZAPRIDE (HYDROCHLORIDE)] [Concomitant]
     Indication: Nausea
     Route: 042
     Dates: start: 20241206, end: 20241214
  6. ZOPHREN 8 mg, film-coated tablet [ONDANSETRON (DIHYDRATE HYDROCHLORIDE [Concomitant]
     Indication: Nausea
     Route: 048
     Dates: start: 20241206, end: 20241214
  7. APREPITANT [APREPITANT] [Concomitant]
     Indication: Nausea
     Route: 048
     Dates: start: 20241206, end: 20241207

REACTIONS (1)
  - Hyperthermia [Recovered/Resolved]

NARRATIVE: CASE EVENT DATE: 20241206
